FAERS Safety Report 19983148 (Version 3)
Quarter: 2022Q1

REPORT INFORMATION
  Report Type: Spontaneous
  Country: US (occurrence: US)
  Receive Date: 20211022
  Receipt Date: 20220128
  Transmission Date: 20220423
  Serious: No
  Sender: FDA-Public Use
  Company Number: US-LUPIN PHARMACEUTICALS INC.-2021-19883

PATIENT
  Sex: Male

DRUGS (2)
  1. PHENELZINE [Suspect]
     Active Substance: PHENELZINE
     Indication: Product used for unknown indication
     Dosage: UNK LOWERED DOSE
     Route: 065
  2. PHENELZINE [Suspect]
     Active Substance: PHENELZINE
     Dosage: UNK UPPING DOSE
     Route: 065

REACTIONS (3)
  - Confusional state [Unknown]
  - Pain [Unknown]
  - Drug ineffective [Unknown]
